FAERS Safety Report 5360490-7 (Version None)
Quarter: 2007Q2

REPORT INFORMATION
  Report Type: 
  Country: None (occurrence: None)
  Receive Date: 20070618
  Receipt Date: 20070608
  Transmission Date: 20071010
  Serious: Yes (Hospitalization)
  Sender: FDA-Public Use
  Company Number: B0461164A

PATIENT
  Age: 60 Year
  Sex: Female
  Weight: 49 kg

DRUGS (6)
  1. KIVEXA [Suspect]
     Dosage: 1UNIT PER DAY
     Route: 048
     Dates: start: 20070113, end: 20070202
  2. KALETRA [Suspect]
     Dosage: 2UNIT TWICE PER DAY
     Route: 048
     Dates: start: 20070113, end: 20070202
  3. MEPRONIZINE [Concomitant]
     Route: 048
  4. TERCIAN [Concomitant]
     Route: 048
  5. ATHYMIL [Concomitant]
     Dosage: 1UNIT PER DAY
     Route: 048
  6. ALPRAZOLAM [Concomitant]
     Route: 048

REACTIONS (7)
  - ABDOMINAL PAIN [None]
  - DIARRHOEA [None]
  - FATIGUE [None]
  - HEADACHE [None]
  - HYPERSENSITIVITY [None]
  - PYREXIA [None]
  - VOMITING [None]
